FAERS Safety Report 15351305 (Version 3)
Quarter: 2019Q1

REPORT INFORMATION
  Report Type: Spontaneous
  Country: US (occurrence: US)
  Receive Date: 20180905
  Receipt Date: 20190130
  Transmission Date: 20190417
  Serious: No
  Sender: FDA-Public Use
  Company Number: US-PFIZER INC-2018333085

PATIENT
  Age: 29 Year
  Sex: Female

DRUGS (1)
  1. XELJANZ [Suspect]
     Active Substance: TOFACITINIB CITRATE
     Indication: CROHN^S DISEASE
     Dosage: 10 MG, UNK (X60)
     Dates: start: 20180815, end: 20190117

REACTIONS (6)
  - Diarrhoea [Recovering/Resolving]
  - Eructation [Recovering/Resolving]
  - Fatigue [Recovering/Resolving]
  - Drug ineffective for unapproved indication [Unknown]
  - Dizziness [Not Recovered/Not Resolved]
  - Rash [Unknown]

NARRATIVE: CASE EVENT DATE: 20180815
